FAERS Safety Report 20176575 (Version 1)
Quarter: 2021Q4

REPORT INFORMATION
  Report Type: Spontaneous
  Country: CA (occurrence: CA)
  Receive Date: 20211213
  Receipt Date: 20211213
  Transmission Date: 20220303
  Serious: Yes (Other)
  Sender: FDA-Public Use
  Company Number: CA-AMNEAL PHARMACEUTICALS-2021-AMRX-04880

PATIENT
  Sex: Male

DRUGS (1)
  1. DEXAMETHASONE SODIUM PHOSPHATE [Suspect]
     Active Substance: DEXAMETHASONE SODIUM PHOSPHATE
     Indication: Bronchopulmonary dysplasia
     Dosage: 0.75 MILLIGRAM/KILOGRAM, 1 /DAY
     Route: 065

REACTIONS (2)
  - Diabetes insipidus [Recovered/Resolved]
  - Hypernatraemia [Recovered/Resolved]
